FAERS Safety Report 10209777 (Version 1)
Quarter: 2014Q2

REPORT INFORMATION
  Report Type: Spontaneous
  Country: US (occurrence: US)
  Receive Date: 20140602
  Receipt Date: 20140602
  Transmission Date: 20141212
  Serious: No
  Sender: FDA-Public Use
  Company Number: US-009507513-1405USA009692

PATIENT
  Sex: Female

DRUGS (4)
  1. DULERA [Suspect]
     Indication: LUNG DISORDER
     Dosage: 200/5 MCG 2 PUFFS TWICE DAILY
     Route: 055
     Dates: start: 201403
  2. SPIRIVA [Concomitant]
  3. WELCHOL [Concomitant]
  4. ZETIA [Concomitant]
     Route: 048

REACTIONS (4)
  - Candida infection [Not Recovered/Not Resolved]
  - Dysphonia [Not Recovered/Not Resolved]
  - Dry mouth [Not Recovered/Not Resolved]
  - Off label use [Unknown]
